FAERS Safety Report 26103717 (Version 2)
Quarter: 2025Q4

REPORT INFORMATION
  Report Type: Report from Study
  Country: US (occurrence: None)
  Receive Date: 20251129
  Receipt Date: 20251202
  Transmission Date: 20260119
  Serious: Yes (Other)
  Sender: UCB
  Company Number: US-UCBSA-2025074422

PATIENT
  Weight: 25.1 kg

DRUGS (13)
  1. FENFLURAMINE [Suspect]
     Active Substance: FENFLURAMINE
     Indication: Severe myoclonic epilepsy of infancy
     Dosage: 2 MILLILITER, 2X/DAY (BID)
  2. FENFLURAMINE [Suspect]
     Active Substance: FENFLURAMINE
     Dosage: UNK
  3. FENFLURAMINE [Suspect]
     Active Substance: FENFLURAMINE
     Dosage: UNK
  4. FENFLURAMINE [Suspect]
     Active Substance: FENFLURAMINE
     Dosage: UNK
  5. FENFLURAMINE [Suspect]
     Active Substance: FENFLURAMINE
     Dosage: 0.36 MG/KG/DAY TO A TOTAL DOSE OF 7.04 MG/DAY
  6. FENFLURAMINE [Suspect]
     Active Substance: FENFLURAMINE
     Dosage: 0.36 MG/KG/DAY TO A TOTAL DOSE OF 8 MG/DAY
  7. FENFLURAMINE [Suspect]
     Active Substance: FENFLURAMINE
     Dosage: 0.39 MG/KG/DAY TO A TOTAL DOSE OF 8.8 MG/DAY
  8. FENFLURAMINE [Suspect]
     Active Substance: FENFLURAMINE
     Dosage: 9.68 MG/DAY AND 11 MG/DAY
  9. FENFLURAMINE [Suspect]
     Active Substance: FENFLURAMINE
     Dosage: 0.4 MG/KG/DAY
  10. ONFI [Concomitant]
     Active Substance: CLOBAZAM
     Indication: Product used for unknown indication
     Dosage: UNK
  11. EPIDIOLEX [Concomitant]
     Active Substance: CANNABIDIOL
     Indication: Product used for unknown indication
     Dosage: UNK
  12. EPIDIOLEX [Concomitant]
     Active Substance: CANNABIDIOL
     Dosage: DECREASED DOSE
  13. DEPAKOTE [Concomitant]
     Active Substance: DIVALPROEX SODIUM
     Indication: Product used for unknown indication
     Dosage: UNK

REACTIONS (2)
  - Tricuspid valve incompetence [Not Recovered/Not Resolved]
  - Seizure [Recovered/Resolved]
